FAERS Safety Report 24400244 (Version 1)
Quarter: 2024Q4

REPORT INFORMATION
  Report Type: Spontaneous
  Country: US (occurrence: US)
  Receive Date: 20241005
  Receipt Date: 20241005
  Transmission Date: 20250114
  Serious: Yes (Life-Threatening, Hospitalization, Other)
  Sender: GLENMARK
  Company Number: US-GLENMARK PHARMACEUTICALS-2024GMK094483

PATIENT

DRUGS (2)
  1. DILTIAZEM HYDROCHLORIDE [Suspect]
     Active Substance: DILTIAZEM HYDROCHLORIDE
     Indication: Supraventricular tachycardia
     Dosage: UNK, BOLUS
     Route: 040
  2. DILTIAZEM HYDROCHLORIDE [Suspect]
     Active Substance: DILTIAZEM HYDROCHLORIDE
     Indication: Atrial fibrillation
     Dosage: UNK (INFUSION), TRANSITIONED TO A DILTIAZEM INFUSION
     Route: 041

REACTIONS (7)
  - Hyperthyroidism [Unknown]
  - Cardiopulmonary failure [Unknown]
  - Acidosis hyperchloraemic [Unknown]
  - Respiratory failure [Unknown]
  - Thyrotoxic crisis [Unknown]
  - Pleural effusion [Unknown]
  - Heart rate decreased [Unknown]
